FAERS Safety Report 4638660-2 (Version None)
Quarter: 2005Q2

REPORT INFORMATION
  Report Type: 
  Country: None (occurrence: None)
  Receive Date: 20050415
  Receipt Date: 20050415
  Transmission Date: 20051028
  Serious: Yes (Other)
  Sender: FDA-Public Use
  Company Number: None

PATIENT
  Age: 11 Month
  Sex: Female
  Weight: 11.1131 kg

DRUGS (2)
  1. KENALOG [Suspect]
     Indication: BRONCHITIS ACUTE
     Dosage: 40MG LEFT LEG IM
     Route: 030
  2. KENALOG [Suspect]
     Indication: OTITIS MEDIA
     Dosage: 40MG LEFT LEG IM
     Route: 030

REACTIONS (2)
  - MUSCLE DISORDER [None]
  - SKIN DISORDER [None]
